FAERS Safety Report 15441071 (Version 1)
Quarter: 2018Q3

REPORT INFORMATION
  Report Type: Spontaneous
  Country: TR (occurrence: TR)
  Receive Date: 20180928
  Receipt Date: 20180928
  Transmission Date: 20181010
  Serious: Yes (Other)
  Sender: FDA-Public Use
  Company Number: TR-BAYER-2018-007407

PATIENT
  Age: 60 Year
  Sex: Male

DRUGS (1)
  1. STIVARGA [Suspect]
     Active Substance: REGORAFENIB
     Indication: RECTAL CANCER
     Dosage: UNK
     Route: 048

REACTIONS (13)
  - Metastases to liver [None]
  - Mouth haemorrhage [Recovered/Resolved]
  - Drug intolerance [None]
  - Metastases to central nervous system [None]
  - Skin reaction [Recovered/Resolved]
  - Benign lung neoplasm [None]
  - Hyperkeratosis [Not Recovered/Not Resolved]
  - Rectal cancer [None]
  - Muscle spasms [None]
  - Nausea [Not Recovered/Not Resolved]
  - Fatigue [Not Recovered/Not Resolved]
  - Dysphonia [Not Recovered/Not Resolved]
  - Asthenia [Not Recovered/Not Resolved]
